FAERS Safety Report 22353934 (Version 1)
Quarter: 2023Q2

REPORT INFORMATION
  Report Type: Spontaneous
  Country: US (occurrence: US)
  Receive Date: 20230523
  Receipt Date: 20230523
  Transmission Date: 20230722
  Serious: Yes (Hospitalization)
  Sender: FDA-Public Use
  Company Number: US-GAMIDA CELL LTD.-TEST CASE

PATIENT
  Age: 50 Year
  Sex: Male

DRUGS (3)
  1. OMISIRGE [Suspect]
     Active Substance: OMIDUBICEL-ONLV
     Indication: Haematological malignancy
     Dosage: UNK
     Dates: start: 20220201
  2. ACETAMINOPHEN [Concomitant]
     Active Substance: ACETAMINOPHEN
     Indication: Headache
     Dosage: 400 MILLIGRAM, DAILY
     Dates: start: 20230605, end: 20230607
  3. LEVOTHYROXINE SODIUM [Suspect]
     Active Substance: LEVOTHYROXINE SODIUM
     Indication: Hypothyroidism
     Dosage: UNK
     Dates: start: 20211006

REACTIONS (1)
  - Pyrexia [Recovered/Resolved]

NARRATIVE: CASE EVENT DATE: 20230401
